FAERS Safety Report 14738188 (Version 1)
Quarter: 2018Q2

REPORT INFORMATION
  Report Type: Spontaneous
  Country: US (occurrence: US)
  Receive Date: 20180409
  Receipt Date: 20180409
  Transmission Date: 20180711
  Serious: Yes (Other)
  Sender: FDA-Public Use
  Company Number: US-BAYER-2018-062698

PATIENT
  Age: 73 Year
  Sex: Female
  Weight: 75 kg

DRUGS (3)
  1. ALEVE [Suspect]
     Active Substance: NAPROXEN SODIUM
  2. BAYER ASPIRIN [Suspect]
     Active Substance: ASPIRIN
     Indication: RENAL PAIN
     Route: 048
  3. ALEVE TENS DEVICE DIRECT THERAPY UNIT [Concomitant]
     Active Substance: DEVICE
     Indication: BACK PAIN
     Route: 048

REACTIONS (3)
  - Renal pain [Not Recovered/Not Resolved]
  - Incorrect dose administered [Unknown]
  - Product use in unapproved indication [Unknown]
